FAERS Safety Report 4360840-4 (Version None)
Quarter: 2004Q2

REPORT INFORMATION
  Report Type: 
  Country: None (occurrence: None)
  Receive Date: 20040519
  Receipt Date: 20040519
  Transmission Date: 20050107
  Serious: Yes (Other)
  Sender: FDA-Public Use
  Company Number: None

PATIENT
  Age: 19 Year
  Sex: Male
  Weight: 103 kg

DRUGS (17)
  1. GAMUNEX [Suspect]
     Indication: KIDNEY TRANSPLANT REJECTION
     Dates: start: 20040128
  2. GAMUNEX [Suspect]
     Indication: KIDNEY TRANSPLANT REJECTION
     Dates: start: 20040129
  3. GAMUNEX [Suspect]
     Indication: KIDNEY TRANSPLANT REJECTION
     Dates: start: 20040213
  4. SIROLIMUS [Concomitant]
  5. DARBEPOETIN [Concomitant]
  6. K-DUR 10 [Concomitant]
  7. LASIX [Concomitant]
  8. CELLCEPT [Concomitant]
  9. BACTRIM DS [Concomitant]
  10. NYSTATIN [Concomitant]
  11. VALGANCICLOVIR [Concomitant]
  12. SODIUM BICARBONATE [Concomitant]
  13. AMLODIPINE [Concomitant]
  14. ZANTAC [Concomitant]
  15. LABETALOL HCL [Concomitant]
  16. NIFEREX [Concomitant]
  17. PREDNISONE [Concomitant]

REACTIONS (2)
  - BLOOD CREATININE INCREASED [None]
  - BLOOD PRESSURE ABNORMAL [None]
